FAERS Safety Report 26068806 (Version 1)
Quarter: 2025Q4

REPORT INFORMATION
  Report Type: Spontaneous
  Country: EU (occurrence: EU)
  Receive Date: 20251120
  Receipt Date: 20251120
  Transmission Date: 20260117
  Serious: Yes (Hospitalization, Other)
  Sender: AJANTA PHARMA USA INC
  Company Number: EU-AJANTA-2025AJA00154

PATIENT
  Age: 64 Year
  Sex: Female

DRUGS (13)
  1. OSELTAMIVIR PHOSPHATE [Suspect]
     Active Substance: OSELTAMIVIR PHOSPHATE
     Indication: Influenza
  2. WARFARIN [Suspect]
     Active Substance: WARFARIN
     Indication: Atrial fibrillation
  3. WARFARIN [Suspect]
     Active Substance: WARFARIN
  4. WARFARIN [Suspect]
     Active Substance: WARFARIN
  5. WARFARIN [Suspect]
     Active Substance: WARFARIN
  6. FUROSEMIDE [Concomitant]
     Active Substance: FUROSEMIDE
  7. BISOPROLOL [Concomitant]
     Active Substance: BISOPROLOL
  8. SPIRONOLACTONE [Concomitant]
     Active Substance: SPIRONOLACTONE
  9. DAPAGLIFLOZIN [Concomitant]
     Active Substance: DAPAGLIFLOZIN
  10. LEVOTHYROXINE [Concomitant]
     Active Substance: LEVOTHYROXINE
     Indication: Hypothyroidism
  11. TERBUTALINE [Concomitant]
     Active Substance: TERBUTALINE
     Indication: Chronic respiratory failure
  12. FLUTICASONE [Concomitant]
     Active Substance: FLUTICASONE
     Indication: Chronic respiratory failure
  13. SALMETEROL [Concomitant]
     Active Substance: SALMETEROL
     Indication: Chronic respiratory failure

REACTIONS (2)
  - Melaena [Recovering/Resolving]
  - Drug interaction [Recovering/Resolving]
